FAERS Safety Report 25766988 (Version 1)
Quarter: 2025Q3

REPORT INFORMATION
  Report Type: Spontaneous
  Country: US (occurrence: None)
  Receive Date: 20250904
  Receipt Date: 20250904
  Transmission Date: 20251020
  Serious: Yes (Hospitalization)
  Sender: FDA-CTU
  Company Number: None

PATIENT
  Age: 67 Year
  Sex: Female
  Weight: 78.75 kg

DRUGS (1)
  1. ASCENIV [Suspect]
     Active Substance: HUMAN IMMUNOGLOBULIN G
     Indication: Immunodeficiency
     Dosage: FREQUENCY : EVERY THREE WEEKS;?
     Route: 041
     Dates: end: 20250904

REACTIONS (2)
  - Chest pain [None]
  - Malaise [None]

NARRATIVE: CASE EVENT DATE: 20250903
